FAERS Safety Report 17574677 (Version 2)
Quarter: 2020Q1

REPORT INFORMATION
  Report Type: Spontaneous
  Country: US (occurrence: US)
  Receive Date: 20200324
  Receipt Date: 20200327
  Transmission Date: 20200409
  Serious: Yes (Other)
  Sender: FDA-Public Use
  Company Number: US-ELI_LILLY_AND_COMPANY-US202003005365

PATIENT
  Age: 81 Year
  Sex: Female

DRUGS (3)
  1. XELJANZ [Suspect]
     Active Substance: TOFACITINIB CITRATE
     Indication: PRODUCT USED FOR UNKNOWN INDICATION
     Dosage: UNK UNK, UNKNOWN
     Route: 065
     Dates: start: 20160426, end: 20200206
  2. DULOXETINE HYDROCHLORIDE. [Suspect]
     Active Substance: DULOXETINE HYDROCHLORIDE
     Indication: DEPRESSION
     Dosage: UNK UNK, UNKNOWN (TITRATING UP TO 60 MG)
     Route: 065
     Dates: start: 20200110
  3. XELJANZ [Suspect]
     Active Substance: TOFACITINIB CITRATE
     Dosage: UNK UNK, UNKNOWN
     Route: 065
     Dates: start: 20200303

REACTIONS (6)
  - Osteomyelitis [Unknown]
  - Dizziness [Unknown]
  - Weight decreased [Unknown]
  - Mobility decreased [Unknown]
  - Memory impairment [Unknown]
  - Product dose omission [Unknown]

NARRATIVE: CASE EVENT DATE: 20200309
